FAERS Safety Report 13437002 (Version 2)
Quarter: 2018Q1

REPORT INFORMATION
  Report Type: Spontaneous
  Country: US (occurrence: US)
  Receive Date: 20170413
  Receipt Date: 20180329
  Transmission Date: 20180508
  Serious: No
  Sender: FDA-Public Use
  Company Number: US-SA-2017SA042145

PATIENT
  Age: 31 Year
  Sex: Female

DRUGS (1)
  1. ALLEGRA-D [Suspect]
     Active Substance: FEXOFENADINE\PSEUDOEPHEDRINE
     Indication: MULTIPLE ALLERGIES
     Dosage: 60 MG /120 MG
     Route: 065
     Dates: start: 20170216

REACTIONS (2)
  - Medication residue present [Unknown]
  - Drug ineffective [Unknown]
